FAERS Safety Report 20169001 (Version 5)
Quarter: 2024Q1

REPORT INFORMATION
  Report Type: Spontaneous
  Country: PT (occurrence: PT)
  Receive Date: 20211210
  Receipt Date: 20240209
  Transmission Date: 20240410
  Serious: Yes (Disabling, Other)
  Sender: FDA-Public Use
  Company Number: PT-AUROBINDO-AUR-APL-2021-050592

PATIENT
  Age: 33 Year
  Sex: Female

DRUGS (10)
  1. RISPERIDONE [Interacting]
     Active Substance: RISPERIDONE
     Indication: Depression
     Dosage: 1 MILLIGRAM, ONCE A DAY
     Route: 065
  2. RISPERIDONE [Interacting]
     Active Substance: RISPERIDONE
     Indication: Obsessive-compulsive disorder
  3. SERTRALINE [Interacting]
     Active Substance: SERTRALINE HYDROCHLORIDE
     Indication: Depression
     Dosage: 200 MILLIGRAM, ONCE A DAY
     Route: 065
  4. SERTRALINE [Interacting]
     Active Substance: SERTRALINE HYDROCHLORIDE
     Indication: Obsessive-compulsive disorder
  5. ARIPIPRAZOLE [Interacting]
     Active Substance: ARIPIPRAZOLE
     Indication: Obsessive-compulsive disorder
     Dosage: UNK
     Route: 065
  6. ARIPIPRAZOLE [Interacting]
     Active Substance: ARIPIPRAZOLE
     Indication: Depression
  7. FLUVOXAMINE [Suspect]
     Active Substance: FLUVOXAMINE
     Indication: Obsessive-compulsive disorder
     Dosage: UNK
     Route: 065
     Dates: start: 2019
  8. FLUVOXAMINE [Suspect]
     Active Substance: FLUVOXAMINE
     Indication: Depression
  9. CLOMIPRAMINE [Concomitant]
     Active Substance: CLOMIPRAMINE
     Indication: Depression
     Dosage: UNK
     Route: 065
  10. CLOMIPRAMINE [Concomitant]
     Active Substance: CLOMIPRAMINE
     Indication: Obsessive-compulsive disorder

REACTIONS (7)
  - Antipsychotic drug level increased [Unknown]
  - Oedema peripheral [Recovered/Resolved]
  - Weight increased [Recovered/Resolved]
  - Drug interaction [Recovered/Resolved]
  - Fatigue [Recovered/Resolved]
  - Somnolence [Unknown]
  - Therapeutic product effect incomplete [Unknown]
